FAERS Safety Report 8781784 (Version 1)
Quarter: 2012Q4

REPORT INFORMATION
  Report Type: 
  Country: US (occurrence: US)
  Receive Date: 20120913
  Receipt Date: 20120913
  Transmission Date: 20130627
  Serious: Yes (Life-Threatening)
  Sender: FDA-Public Use
  Company Number: US-009507513-1209USA003735

PATIENT

DRUGS (1)
  1. MEVACOR TABLET [Suspect]
     Route: 048

REACTIONS (1)
  - Myalgia [Unknown]
